FAERS Safety Report 16555729 (Version 2)
Quarter: 2019Q3

REPORT INFORMATION
  Report Type: Report from Study
  Country: US (occurrence: US)
  Receive Date: 20190710
  Receipt Date: 20190726
  Transmission Date: 20191004
  Serious: Yes (Hospitalization)
  Sender: FDA-Public Use
  Company Number: US-CELGENEUS-USA-20190702312

PATIENT
  Age: 67 Year
  Sex: Male
  Weight: 90.8 kg

DRUGS (8)
  1. ABRAXANE [Suspect]
     Active Substance: PACLITAXEL
     Indication: OROPHARYNGEAL CANCER
     Dosage: 220 MILLIGRAM
     Route: 041
     Dates: start: 20190318, end: 20190514
  2. FLUOROURACIL. [Concomitant]
     Active Substance: FLUOROURACIL
     Indication: OROPHARYNGEAL CANCER
     Route: 065
     Dates: start: 20190708
  3. NIVOLUMAB [Suspect]
     Active Substance: NIVOLUMAB
     Indication: OROPHARYNGEAL CANCER
     Dosage: 360 MILLIGRAM
     Route: 041
     Dates: start: 20190318, end: 20190514
  4. HYDROXYUREA. [Concomitant]
     Active Substance: HYDROXYUREA
     Indication: OROPHARYNGEAL CANCER
     Route: 065
     Dates: start: 20190708
  5. RADIATION THERAPY [Concomitant]
     Active Substance: RADIATION THERAPY
     Indication: OROPHARYNGEAL CANCER
     Route: 065
     Dates: start: 20190708
  6. TAXOL [Concomitant]
     Active Substance: PACLITAXEL
     Indication: OROPHARYNGEAL CANCER
     Route: 065
     Dates: start: 20190708
  7. PACLITAXEL. [Concomitant]
     Active Substance: PACLITAXEL
     Indication: OROPHARYNGEAL CANCER
     Route: 065
     Dates: start: 20190708
  8. 5-FLUOROURACIL [Concomitant]
     Active Substance: FLUOROURACIL
     Indication: OROPHARYNGEAL CANCER
     Route: 041
     Dates: start: 20190708

REACTIONS (2)
  - Dysphagia [Unknown]
  - Mucosal inflammation [Unknown]

NARRATIVE: CASE EVENT DATE: 20190703
